FAERS Safety Report 10977183 (Version 1)
Quarter: 2015Q1

REPORT INFORMATION
  Report Type: Spontaneous
  Country: US (occurrence: None)
  Receive Date: 20150330
  Receipt Date: 20150330
  Transmission Date: 20150721
  Serious: Yes (Death)
  Sender: FDA-Public Use
  Company Number: 2015EDG00014

PATIENT
  Age: 38 Year
  Sex: Male
  Weight: 89 kg

DRUGS (4)
  1. SAPHRIS [Suspect]
     Active Substance: ASENAPINE MALEATE
  2. BUPROPION (BUPROPION) UNKNOWN [Suspect]
     Active Substance: BUPROPION
  3. QUETIAPINE [Concomitant]
     Active Substance: QUETIAPINE
  4. ALPRAZOLAM. [Concomitant]
     Active Substance: ALPRAZOLAM

REACTIONS (5)
  - Completed suicide [None]
  - Toxicity to various agents [None]
  - Pulmonary congestion [None]
  - Pulmonary oedema [None]
  - Asphyxia [None]
